FAERS Safety Report 5463853-4 (Version None)
Quarter: 2007Q3

REPORT INFORMATION
  Report Type: 
  Country: None (occurrence: None)
  Receive Date: 20070921
  Receipt Date: 20070911
  Transmission Date: 20080115
  Serious: Yes (Hospitalization)
  Sender: FDA-Public Use
  Company Number: US-MERCK-0709USA02059

PATIENT
  Age: 59 Year
  Sex: Male

DRUGS (15)
  1. ZOCOR [Suspect]
     Route: 048
     Dates: end: 20050901
  2. ASPIRIN [Concomitant]
     Route: 065
  3. SYNTHROID [Concomitant]
     Route: 065
  4. ZANTAC [Concomitant]
     Route: 065
  5. SALSALATE [Concomitant]
     Route: 065
  6. PLAVIX [Concomitant]
     Route: 065
  7. LITHIUM ACETATE [Concomitant]
     Route: 065
  8. ROBAXIN [Concomitant]
     Route: 065
  9. CLARITIN [Concomitant]
     Route: 065
  10. VITAMINS (UNSPECIFIED) [Concomitant]
     Route: 065
  11. NITRO-DUR [Concomitant]
     Route: 061
  12. DIAZEPAM [Concomitant]
     Route: 065
  13. MIRALAX [Concomitant]
     Route: 065
  14. METOPROLOL [Suspect]
     Route: 065
     Dates: end: 20050914
  15. METOPROLOL [Suspect]
     Route: 065
     Dates: start: 20050915

REACTIONS (5)
  - DYSPNOEA [None]
  - FATIGUE [None]
  - MYOSITIS [None]
  - NON-CARDIAC CHEST PAIN [None]
  - SINUS BRADYCARDIA [None]
